FAERS Safety Report 7906857-1 (Version None)
Quarter: 2011Q4

REPORT INFORMATION
  Report Type: 
  Country: None (occurrence: None)
  Receive Date: 20111110
  Receipt Date: 20111107
  Transmission Date: 20120403
  Serious: No
  Sender: FDA-Public Use
  Company Number: US-PFIZER INC-2011230044

PATIENT
  Sex: Female

DRUGS (8)
  1. METOPROLOL TARTRATE [Concomitant]
     Dosage: 50 MG, 2X/DAY
     Route: 048
  2. COMPAZINE [Concomitant]
     Indication: NAUSEA
     Dosage: 10 MG, AS NEEDED
     Route: 048
  3. ZOFRAN [Concomitant]
     Indication: NAUSEA
     Dosage: 8 MG, AS NEEDED
     Route: 048
  4. ZOFRAN [Concomitant]
     Indication: VOMITING
  5. XALKORI [Suspect]
     Indication: LUNG NEOPLASM MALIGNANT
     Dosage: 250 MG, 2X/DAY
     Route: 048
     Dates: start: 20110916
  6. NORVASC [Concomitant]
     Dosage: 5 MG, 1X/DAY
     Route: 048
  7. COMPAZINE [Concomitant]
     Indication: VOMITING
  8. LISINOPRIL [Concomitant]
     Dosage: 20 MG, 1X/DAY
     Route: 048

REACTIONS (8)
  - OROPHARYNGEAL PAIN [None]
  - SINUS CONGESTION [None]
  - COUGH [None]
  - DIZZINESS [None]
  - DECREASED APPETITE [None]
  - RHINORRHOEA [None]
  - FATIGUE [None]
  - DYSGEUSIA [None]
